FAERS Safety Report 8255320-X (Version None)
Quarter: 2012Q1

REPORT INFORMATION
  Report Type: 
  Country: None (occurrence: None)
  Receive Date: 20120322
  Receipt Date: 20111222
  Transmission Date: 20120608
  Serious: Yes (Hospitalization)
  Sender: FDA-Public Use
  Company Number: UTC-012602

PATIENT
  Age: 33 Year
  Sex: Female
  Weight: 27.04 kg

DRUGS (2)
  1. TYVASO [Suspect]
     Indication: COR PULMONALE CHRONIC
     Dosage: 72 MCG (18 MCG, 4 IN 1 D), INHALATION
     Route: 055
     Dates: start: 20110407
  2. TRACLEER [Concomitant]

REACTIONS (4)
  - URINARY TRACT INFECTION [None]
  - FLUID RETENTION [None]
  - GASTRIC DISORDER [None]
  - BRONCHITIS [None]
